FAERS Safety Report 17741676 (Version 1)
Quarter: 2020Q2

REPORT INFORMATION
  Report Type: Spontaneous
  Country: DE (occurrence: DE)
  Receive Date: 20200504
  Receipt Date: 20200504
  Transmission Date: 20200714
  Serious: Yes (Hospitalization)
  Sender: FDA-Public Use
  Company Number: DE-MYLANLABS-2020M1042779

PATIENT
  Age: 86 Year
  Sex: Female

DRUGS (13)
  1. MACROGOL [Concomitant]
     Active Substance: POLYETHYLENE GLYCOLS
     Dosage: 10 G, 1-0-0-0, TROCKENSAFT
  2. FLUTICASONE W/SALMETEROL [Concomitant]
     Active Substance: FLUTICASONE PROPIONATE\SALMETEROL XINAFOATE
     Dosage: 250|50 ?G, 1-0-1-0, DOSIERAEROSOL
  3. ALLOPURINOL. [Concomitant]
     Active Substance: ALLOPURINOL
     Dosage: 300 MG, 1-0-0-0, TABLETTEN
  4. PANTOPRAZOL                        /01263201/ [Concomitant]
     Active Substance: PANTOPRAZOLE
     Dosage: 40 MG, 1-0-0-0, TABLETTEN
  5. CALCIUM W/COLECALCIFEROL [Concomitant]
     Active Substance: CALCIUM\CHOLECALCIFEROL
     Dosage: 500|1000 MG/IE, 1-0-0-0, KAUTABLETTEN
  6. ALENDRONSAEURE [Concomitant]
     Active Substance: ALENDRONATE SODIUM
     Dosage: 70 MG, SAMSTAGS, TABLETTEN
  7. XIPAMIDE [Suspect]
     Active Substance: XIPAMIDE
     Indication: PRODUCT USED FOR UNKNOWN INDICATION
     Dosage: 10 MG, 1-0-0-0, TABLETTEN
  8. NALOXONE HYDROCHLORIDE/TILIDINE HYDROCHLORIDE [Suspect]
     Active Substance: NALOXONE HYDROCHLORIDE\TILIDINE HYDROCHLORIDE
     Indication: PRODUCT USED FOR UNKNOWN INDICATION
     Dosage: 4|50 MG, 1-0-1-0, TABLETTEN
  9. TORASEMIDE [Suspect]
     Active Substance: TORSEMIDE
     Indication: PRODUCT USED FOR UNKNOWN INDICATION
     Dosage: 10 MG, 2-1-0-0, TABLETTEN
  10. CARBAMAZEPINE. [Suspect]
     Active Substance: CARBAMAZEPINE
     Indication: PRODUCT USED FOR UNKNOWN INDICATION
     Dosage: 200 MG, 1-0-1-0, TABLETTEN
  11. CITALOPRAM [Suspect]
     Active Substance: CITALOPRAM HYDROBROMIDE
     Indication: PRODUCT USED FOR UNKNOWN INDICATION
     Dosage: 20 MG, 0.5-0-0-0, TABLETTEN
  12. FENOTEROL W/IPRATROPIUM [Concomitant]
     Active Substance: FENOTEROL\IPRATROPIUM BROMIDE
     Dosage: 0.5|0.25 MG, BEI BEDARF
  13. APIXABAN [Concomitant]
     Active Substance: APIXABAN
     Dosage: 2.5 MG, 1-0-1-0, TABLETTEN

REACTIONS (6)
  - Musculoskeletal pain [Unknown]
  - Balance disorder [Unknown]
  - Urinary incontinence [Unknown]
  - General physical health deterioration [Unknown]
  - Fall [Unknown]
  - Constipation [Unknown]
